FAERS Safety Report 7013407-3 (Version None)
Quarter: 2010Q3

REPORT INFORMATION
  Report Type: 
  Country: None (occurrence: None)
  Receive Date: 20100924
  Receipt Date: 20100922
  Transmission Date: 20110219
  Serious: Yes (Hospitalization, Other)
  Sender: FDA-Public Use
  Company Number: FR-BRISTOL-MYERS SQUIBB COMPANY-15299969

PATIENT
  Age: 89 Year
  Sex: Female

DRUGS (7)
  1. COUMADIN [Interacting]
     Indication: ANTICOAGULANT THERAPY
     Dosage: 1DF= 1 TABLET.
     Dates: start: 20100701
  2. TAVANIC [Interacting]
     Indication: BACTERIAL PYELONEPHRITIS
     Dosage: 1DF= 1(UNITS NOS).
     Route: 048
     Dates: start: 20100701
  3. TAVANIC [Interacting]
     Indication: LUNG DISORDER
     Dosage: 1DF= 1(UNITS NOS).
     Route: 048
     Dates: start: 20100701
  4. OFLOCET [Interacting]
     Indication: BACTERIAL PYELONEPHRITIS
  5. OFLOCET [Interacting]
     Indication: LUNG DISORDER
  6. AUGMENTIN '125' [Suspect]
     Indication: BACTERIAL PYELONEPHRITIS
  7. AUGMENTIN '125' [Suspect]
     Indication: LUNG DISORDER

REACTIONS (5)
  - BACTERIAL PYELONEPHRITIS [None]
  - DRUG INTERACTION [None]
  - GASTROINTESTINAL HAEMORRHAGE [None]
  - INTERNATIONAL NORMALISED RATIO INCREASED [None]
  - LUNG DISORDER [None]
